FAERS Safety Report 6423599-2 (Version None)
Quarter: 2009Q4

REPORT INFORMATION
  Report Type: 
  Country: None (occurrence: None)
  Receive Date: 20091029
  Receipt Date: 20091019
  Transmission Date: 20100525
  Serious: Yes (Other)
  Sender: FDA-Public Use
  Company Number: 2009SP031508

PATIENT
  Sex: Female

DRUGS (9)
  1. DESLORATADINE [Suspect]
     Indication: DRUG USE FOR UNKNOWN INDICATION
     Dosage: 5 MG
     Dates: start: 20090701, end: 20090701
  2. ELOCON [Suspect]
     Indication: DRUG USE FOR UNKNOWN INDICATION
     Dosage: QPM
     Dates: start: 20090901
  3. REMICADE [Suspect]
     Dosage: ONCE ; ONCE
     Dates: start: 20090603, end: 20090603
  4. REMICADE [Suspect]
     Dosage: ONCE ; ONCE
     Dates: start: 20090619, end: 20090619
  5. FUCITHALMINE [Concomitant]
  6. AMLODIPINE [Concomitant]
  7. DOXYCYCLINE [Concomitant]
  8. OMEPRAX [Concomitant]
  9. FENISTIL [Concomitant]

REACTIONS (18)
  - ABDOMINAL PAIN [None]
  - ABDOMINAL PAIN UPPER [None]
  - ACTIVITIES OF DAILY LIVING IMPAIRED [None]
  - ERYTHEMA [None]
  - EYE INFLAMMATION [None]
  - HEADACHE [None]
  - HYPERTENSION [None]
  - INSOMNIA [None]
  - JOINT SWELLING [None]
  - MENISCUS LESION [None]
  - MENOPAUSAL SYMPTOMS [None]
  - NAUSEA [None]
  - ODYNOPHAGIA [None]
  - OROPHARYNGEAL PAIN [None]
  - PHARYNGEAL OEDEMA [None]
  - PRURITUS [None]
  - RASH GENERALISED [None]
  - RASH PUSTULAR [None]
